FAERS Safety Report 18461452 (Version 2)
Quarter: 2020Q4

REPORT INFORMATION
  Report Type: Spontaneous
  Country: IT (occurrence: IT)
  Receive Date: 20201104
  Receipt Date: 20201117
  Transmission Date: 20210114
  Serious: Yes (Hospitalization)
  Sender: FDA-Public Use
  Company Number: IT-ACCORD-207313

PATIENT
  Age: 20 Year
  Sex: Female

DRUGS (9)
  1. POSACONAZOLE [Concomitant]
     Active Substance: POSACONAZOLE
  2. ARACYTIN [Concomitant]
     Active Substance: CYTARABINE
     Indication: LUMBAR PUNCTURE
     Route: 037
     Dates: start: 20200924, end: 20201016
  3. CIPROXIN [Concomitant]
     Active Substance: CIPROFLOXACIN
  4. URBASON [Concomitant]
     Active Substance: METHYLPREDNISOLONE
     Indication: LUMBAR PUNCTURE
     Route: 037
     Dates: start: 20200924, end: 20201016
  5. ACICLOVIR [Concomitant]
     Active Substance: ACYCLOVIR
     Route: 048
  6. METHOTREXATE. [Suspect]
     Active Substance: METHOTREXATE
     Indication: LUMBAR PUNCTURE
     Route: 037
     Dates: start: 20200924, end: 20201016
  7. OMEPRAZOLE. [Concomitant]
     Active Substance: OMEPRAZOLE
  8. BACTRIM [Concomitant]
     Active Substance: SULFAMETHOXAZOLE\TRIMETHOPRIM
     Route: 048
  9. DEURSIL [Concomitant]
     Active Substance: URSODIOL
     Route: 048

REACTIONS (6)
  - Confusional state [Recovering/Resolving]
  - Vomiting [Recovering/Resolving]
  - Off label use [Unknown]
  - Headache [Recovering/Resolving]
  - Coma [Recovering/Resolving]
  - Areflexia [Recovering/Resolving]

NARRATIVE: CASE EVENT DATE: 20201017
